FAERS Safety Report 13393796 (Version 1)
Quarter: 2017Q1

REPORT INFORMATION
  Report Type: Spontaneous
  Country: US (occurrence: US)
  Receive Date: 20170331
  Receipt Date: 20170331
  Transmission Date: 20170429
  Serious: Yes (Other)
  Sender: FDA-Public Use
  Company Number: US-ABBVIE-17P-163-1917852-00

PATIENT
  Sex: Female
  Weight: 124.4 kg

DRUGS (9)
  1. ARMOUR THYROID [Concomitant]
     Active Substance: THYROID, PORCINE
     Indication: PRODUCT USED FOR UNKNOWN INDICATION
  2. SYNTHROID [Suspect]
     Active Substance: LEVOTHYROXINE SODIUM
     Indication: THYROID CANCER
     Route: 048
  3. MORPHINE [Concomitant]
     Active Substance: MORPHINE
     Indication: PRODUCT USED FOR UNKNOWN INDICATION
  4. FENTANYL. [Concomitant]
     Active Substance: FENTANYL
     Indication: PRODUCT USED FOR UNKNOWN INDICATION
  5. DILAUDID [Concomitant]
     Active Substance: HYDROMORPHONE HYDROCHLORIDE
     Indication: PRODUCT USED FOR UNKNOWN INDICATION
  6. AMOXICILLIN. [Concomitant]
     Active Substance: AMOXICILLIN
     Indication: PRODUCT USED FOR UNKNOWN INDICATION
  7. LEVOTHYROXINE. [Suspect]
     Active Substance: LEVOTHYROXINE
     Indication: THYROID CANCER
     Route: 065
  8. PENICILLIN [Concomitant]
     Active Substance: PENICILLIN
     Indication: PRODUCT USED FOR UNKNOWN INDICATION
  9. SULFA DRUGS [Concomitant]
     Active Substance: UNSPECIFIED INGREDIENT
     Indication: PRODUCT USED FOR UNKNOWN INDICATION

REACTIONS (17)
  - Visual impairment [Unknown]
  - Hypoglycaemia [Unknown]
  - Facial paralysis [Unknown]
  - Headache [Unknown]
  - Orthostatic hypotension [Unknown]
  - Altered state of consciousness [Unknown]
  - Tremor [Unknown]
  - Syncope [Unknown]
  - Malaise [Unknown]
  - Fall [Unknown]
  - Feeling abnormal [Unknown]
  - Respiratory disorder [Unknown]
  - Blood glucose decreased [Unknown]
  - Urticaria [Unknown]
  - Parosmia [Unknown]
  - Pseudostroke [Unknown]
  - Blood thyroid stimulating hormone increased [Unknown]
